FAERS Safety Report 8996802 (Version 1)
Quarter: 2013Q1

REPORT INFORMATION
  Report Type: Spontaneous
  Country: US (occurrence: US)
  Receive Date: 20130104
  Receipt Date: 20130104
  Transmission Date: 20140127
  Serious: No
  Sender: FDA-Public Use
  Company Number: US-ELI_LILLY_AND_COMPANY-US201301000206

PATIENT
  Age: 78 Year
  Sex: Female

DRUGS (6)
  1. CYMBALTA [Suspect]
     Indication: DEPRESSION
     Dosage: 30 MG, BID
  2. LIPITOR [Concomitant]
  3. TEMAZEPAM [Concomitant]
     Indication: INSOMNIA
  4. LORAZEPAM [Concomitant]
     Indication: PANIC ATTACK
  5. SPIRIVA [Concomitant]
     Indication: RESPIRATORY DISORDER
  6. PROAIR [Concomitant]
     Indication: RESPIRATORY DISORDER

REACTIONS (3)
  - Depressed mood [Unknown]
  - Amnesia [Recovered/Resolved]
  - Crying [Not Recovered/Not Resolved]
